FAERS Safety Report 15432058 (Version 3)
Quarter: 2019Q1

REPORT INFORMATION
  Report Type: Report from Study
  Country: AU (occurrence: AU)
  Receive Date: 20180926
  Receipt Date: 20190201
  Transmission Date: 20190417
  Serious: Yes (Other)
  Sender: FDA-Public Use
  Company Number: AU-SHIRE-AU201736907

PATIENT

DRUGS (3)
  1. ELAPRASE [Suspect]
     Active Substance: IDURSULFASE
     Indication: OFF LABEL USE
     Dosage: UNK
     Route: 041
     Dates: end: 20180905
  2. ELAPRASE [Suspect]
     Active Substance: IDURSULFASE
     Indication: GAUCHER^S DISEASE TYPE I
     Dosage: 18 MG, 1X/WEEK
     Route: 041
     Dates: start: 20140108, end: 20171228
  3. ELAPRASE [Suspect]
     Active Substance: IDURSULFASE
     Indication: MUCOPOLYSACCHARIDOSIS II
     Dosage: 0.56 MILLIGRAM/KILOGRAM
     Route: 041
     Dates: start: 20180919, end: 20190116

REACTIONS (10)
  - Wheezing [Recovered/Resolved]
  - Malaise [Not Recovered/Not Resolved]
  - Tachycardia [Recovered/Resolved]
  - Off label use [Unknown]
  - Pyrexia [Recovered/Resolved]
  - Cough [Not Recovered/Not Resolved]
  - Catheter site swelling [Recovered/Resolved]
  - Pulmonary congestion [Recovered/Resolved]
  - Blood pressure abnormal [Recovered/Resolved]
  - Rhinorrhoea [Recovered/Resolved]

NARRATIVE: CASE EVENT DATE: 20171228
